FAERS Safety Report 4842493-1 (Version None)
Quarter: 2005Q4

REPORT INFORMATION
  Report Type: 
  Country: None (occurrence: None)
  Receive Date: 20051129
  Receipt Date: 20051116
  Transmission Date: 20060501
  Serious: Yes (Hospitalization, Other)
  Sender: FDA-Public Use
  Company Number: 2005157920

PATIENT
  Age: 65 Year
  Sex: Female

DRUGS (19)
  1. NEURONTIN [Suspect]
     Indication: NEUROPATHY
     Dosage: 100 MG (100 MG, 1 IN 1 D)
     Dates: start: 20050726, end: 20051008
  2. BEXTRA [Concomitant]
  3. CELEBREX [Concomitant]
  4. ACTONEL [Concomitant]
  5. LIPITOR [Concomitant]
  6. NEXIUM [Concomitant]
  7. FLONASE [Concomitant]
  8. ADVAIR DISKUS 100/50 [Concomitant]
  9. PROVENTIL [Concomitant]
  10. CLARINEX [Concomitant]
  11. SINGULAIR ^MERCK^ (MONTELUKAST SODIUM) [Concomitant]
  12. MUCINEX (GUAIFENESIN) [Concomitant]
  13. ECOTRIN (ACETYLSALICYLIC ACID) [Concomitant]
  14. BLACK COHOSH (CIMICIFUGA RACEMOSA ROOT) [Concomitant]
  15. HERBAL PREPARATION (HERBAL PREPARATION) [Concomitant]
  16. ALL OTHER THERAPEUTIC PRODUCTS (ALL OTHER THERAPEUTIC PRODUCTS) [Concomitant]
  17. VITAMIN C (VITAMIN C) [Concomitant]
  18. OMEGA 3 (FISH OIL) [Concomitant]
  19. GLUCOSAMINE W/CHONDROITIN SULFATES (ASCORBIC ACID, CHONDROITIN SULFATE [Concomitant]

REACTIONS (24)
  - BACK PAIN [None]
  - BALANCE DISORDER [None]
  - CEREBROVASCULAR DISORDER [None]
  - CONFUSIONAL STATE [None]
  - DISTURBANCE IN ATTENTION [None]
  - DRUG TOXICITY [None]
  - DYSPNOEA [None]
  - EYE PAIN [None]
  - FATIGUE [None]
  - FLUID RETENTION [None]
  - FREQUENT BOWEL MOVEMENTS [None]
  - HEADACHE [None]
  - HYPOAESTHESIA [None]
  - HYPOREFLEXIA [None]
  - INCONTINENCE [None]
  - MENIERE'S DISEASE [None]
  - PAIN IN EXTREMITY [None]
  - PHOTOPHOBIA [None]
  - POLLAKIURIA [None]
  - PSYCHOSOMATIC DISEASE [None]
  - SOMNOLENCE [None]
  - STRESS [None]
  - TREMOR [None]
  - WEIGHT INCREASED [None]
